FAERS Safety Report 24593506 (Version 1)
Quarter: 2024Q4

REPORT INFORMATION
  Report Type: Spontaneous
  Country: RO (occurrence: RO)
  Receive Date: 20241108
  Receipt Date: 20241108
  Transmission Date: 20250115
  Serious: Yes (Other)
  Sender: EXELIXIS
  Company Number: RO-IPSEN Group, Research and Development-2024-22341

PATIENT
  Sex: Female

DRUGS (1)
  1. CABOMETYX [Suspect]
     Active Substance: CABOZANTINIB S-MALATE
     Indication: Thyroid cancer
     Dosage: 60 MG
     Route: 065

REACTIONS (1)
  - Hepatic cytolysis [Unknown]
